FAERS Safety Report 9006616 (Version 2)
Quarter: 2013Q2

REPORT INFORMATION
  Report Type: Spontaneous
  Country: GB (occurrence: None)
  Receive Date: 20121227
  Receipt Date: 20130401
  Transmission Date: 20140414
  Serious: Yes (Other)
  Sender: FDA-Public Use
  Company Number: 2012-22299

PATIENT
  Age: 55 Year
  Sex: Male

DRUGS (6)
  1. SIMVASTATIN (SIMVASTATIN) [Suspect]
     Indication: BLOOD CHOLESTEROL INCREASED
     Dosage: 40 MG, NOCTE, ORAL
     Route: 048
     Dates: start: 20110613, end: 20120925
  2. AMLODIPINE (AMLODIPINE) [Suspect]
     Indication: HYPERTENSION
     Dosage: 5 MG INCREASED TO 10 MG, ORAL
     Route: 048
     Dates: end: 20120711
  3. RAMIPRIL (RAMIPRIL) [Suspect]
     Indication: HYPERTENSION
     Dosage: 2.5 MG, THEN 5 MG AND THEN 10MG, ORAL
     Route: 048
     Dates: end: 20120711
  4. LOSARTAN POTASSIUM (LOSARTAN POTASSIUM) [Suspect]
     Indication: PRODUCT USED FOR UNKNOWN INDICATION
     Route: 048
  5. LERCANIDIPINE HYDROCHLORIDE [Suspect]
     Indication: PRODUCT USED FOR UNKNOWN INDICATION
     Route: 048
  6. PRAVASTATIN\PRAVASTATIN SODIUM [Suspect]
     Dates: end: 20121206

REACTIONS (14)
  - Confusional state [None]
  - Osteoarthritis [None]
  - Gait disturbance [None]
  - Dysstasia [None]
  - Myalgia [None]
  - Blood pressure increased [None]
  - Feeling abnormal [None]
  - Depressed mood [None]
  - Throat irritation [None]
  - Drug interaction [None]
  - Product quality issue [None]
  - Dyspnoea [None]
  - Mental impairment [None]
  - Fatigue [None]
